FAERS Safety Report 18570867 (Version 1)
Quarter: 2020Q4

REPORT INFORMATION
  Report Type: Spontaneous
  Country: US (occurrence: US)
  Receive Date: 20201202
  Receipt Date: 20201202
  Transmission Date: 20210114
  Serious: No
  Sender: FDA-Public Use
  Company Number: US-ROCHE-2686859

PATIENT
  Sex: Female

DRUGS (1)
  1. EVRYSDI [Suspect]
     Active Substance: RISDIPLAM
     Indication: PRODUCT USED FOR UNKNOWN INDICATION
     Dosage: ONGOING UNKNOWN
     Route: 065

REACTIONS (5)
  - Diarrhoea [Unknown]
  - Headache [Unknown]
  - Nausea [Unknown]
  - Paraesthesia [Unknown]
  - Myalgia [Unknown]
